FAERS Safety Report 21240420 (Version 1)
Quarter: 2022Q3

REPORT INFORMATION
  Report Type: Other
  Country: None (occurrence: US)
  Receive Date: 20220822
  Receipt Date: 20220822
  Transmission Date: 20221026
  Serious: Yes (Other)
  Sender: FDA-Public Use
  Company Number: US-Genexa Inc. -2132120

PATIENT
  Age: 10 Year
  Sex: Female

DRUGS (2)
  1. SLEEPOLOGY FOR CHILDREN [Suspect]
     Active Substance: HOMEOPATHICS
     Indication: Insomnia
     Route: 002
     Dates: start: 20220724, end: 20220726
  2. SLEEPOLOGY FOR CHILDREN [Concomitant]
     Active Substance: HOMEOPATHICS
     Route: 002
     Dates: start: 20220724, end: 20220726

REACTIONS (1)
  - Partial seizures [Recovered/Resolved]

NARRATIVE: CASE EVENT DATE: 20220724
